FAERS Safety Report 5072614-X (Version None)
Quarter: 2006Q3

REPORT INFORMATION
  Report Type: 
  Country: None (occurrence: None)
  Receive Date: 20060807
  Receipt Date: 20060116
  Transmission Date: 20061208
  Serious: Yes (Death)
  Sender: FDA-Public Use
  Company Number: US-GLAXOSMITHKLINE-A0590611A

PATIENT
  Age: 60 Year
  Sex: Male
  Weight: 90.9 kg

DRUGS (1)
  1. PAROXETINE HCL [Suspect]
     Indication: DEPRESSION
     Dosage: 20MG PER DAY
     Route: 048
     Dates: start: 20031222

REACTIONS (11)
  - ANOREXIA [None]
  - COMPLETED SUICIDE [None]
  - FORMICATION [None]
  - GUN SHOT WOUND [None]
  - MOOD ALTERED [None]
  - NERVOUSNESS [None]
  - NIGHT SWEATS [None]
  - POOR PERSONAL HYGIENE [None]
  - PRURITUS [None]
  - SOCIAL AVOIDANT BEHAVIOUR [None]
  - TOXICOLOGIC TEST ABNORMAL [None]
